FAERS Safety Report 14134748 (Version 2)
Quarter: 2018Q1

REPORT INFORMATION
  Report Type: Spontaneous
  Country: US (occurrence: US)
  Receive Date: 20171026
  Receipt Date: 20180124
  Transmission Date: 20180508
  Serious: No
  Sender: FDA-Public Use
  Company Number: US-AMGEN-USASP2017135936

PATIENT
  Age: 87 Year
  Sex: Female

DRUGS (15)
  1. APIDRA SOLOSTAR [Concomitant]
     Active Substance: INSULIN GLULISINE
     Dosage: 100 UNIT, UNK
  2. ELIQUIS [Concomitant]
     Active Substance: APIXABAN
     Dosage: 5 MG, UNK
  3. PREDNISONE. [Concomitant]
     Active Substance: PREDNISONE
     Dosage: 20 MG, UNK
  4. AMLODIPINE [Concomitant]
     Active Substance: AMLODIPINE BESYLATE
     Dosage: 5 MG, UNK
  5. FLUNISOLIDE. [Concomitant]
     Active Substance: FLUNISOLIDE
     Dosage: 25 MUG, UNK
  6. LINZESS [Concomitant]
     Active Substance: LINACLOTIDE
     Dosage: 290 MUG, UNK
  7. REPATHA [Suspect]
     Active Substance: EVOLOCUMAB
     Indication: TYPE V HYPERLIPIDAEMIA
     Dosage: 140 MG, UNK
     Route: 065
  8. HUMULIN N [Concomitant]
     Active Substance: INSULIN HUMAN
     Dosage: 100 UNIT/ML
  9. NAPROXEN. [Concomitant]
     Active Substance: NAPROXEN
     Dosage: 500 MG, UNK
  10. PANTOPRAZOLE [Concomitant]
     Active Substance: PANTOPRAZOLE
     Dosage: 40 MG, UNK
  11. VENTOLIN HFA [Concomitant]
     Active Substance: ALBUTEROL SULFATE
  12. NOVOLOG [Concomitant]
     Active Substance: INSULIN ASPART
     Dosage: 100 UNIT/ML
  13. CLOPIDOGREL [Concomitant]
     Active Substance: CLOPIDOGREL BISULFATE
     Dosage: 75 MG, UNK
  14. CYCLOBENZAPRIN [Concomitant]
     Active Substance: CYCLOBENZAPRINE
     Dosage: 5 MG, UNK
  15. IPRATROPIUM [Concomitant]
     Active Substance: IPRATROPIUM
     Dosage: 0.03 %, UNK

REACTIONS (1)
  - Adverse event [Unknown]
